FAERS Safety Report 7807571-3 (Version None)
Quarter: 2011Q4

REPORT INFORMATION
  Report Type: 
  Country: None (occurrence: None)
  Receive Date: 20111011
  Receipt Date: 20110928
  Transmission Date: 20120403
  Serious: Yes (Other)
  Sender: FDA-Public Use
  Company Number: PHHY2011MX86726

PATIENT
  Sex: Male

DRUGS (8)
  1. ASPIRIN [Concomitant]
     Dosage: UNK UKN, UNK
  2. ASOFLON [Concomitant]
     Indication: URINARY TRACT INFECTION
     Dosage: UNK UKN, UNK
  3. LASIX [Concomitant]
     Dosage: UNK UKN, UNK
  4. MINODIAB [Concomitant]
     Dosage: UNK UKN, UNK
  5. DIOVAN [Suspect]
     Indication: HYPERTENSION
     Dosage: 1 TABLET (160 MG) PER DAY
     Dates: start: 20110801
  6. ZELOKEN [Concomitant]
     Dosage: UNK UKN, UNK
  7. ZYLOPRIM [Concomitant]
     Dosage: UNK UKN, UNK
  8. PERMIXON [Concomitant]
     Indication: URINARY TRACT INFECTION
     Dosage: UNK UKN, UNK

REACTIONS (1)
  - LEUKAEMIA [None]
